FAERS Safety Report 4541718-X (Version None)
Quarter: 2004Q4

REPORT INFORMATION
  Report Type: 
  Country: None (occurrence: None)
  Receive Date: 20041227
  Receipt Date: 20041213
  Transmission Date: 20050328
  Serious: Yes (Death)
  Sender: FDA-Public Use
  Company Number: CERZ-10735

PATIENT
  Age: 87 Year
  Sex: Male
  Weight: 91 kg

DRUGS (1)
  1. CEREZYME [Suspect]
     Indication: GAUCHER'S DISEASE
     Dosage: 2600 UNITS Q2WKS IV
     Route: 042
     Dates: start: 20010101, end: 20041101

REACTIONS (1)
  - DEATH [None]
